FAERS Safety Report 23240953 (Version 1)
Quarter: 2023Q4

REPORT INFORMATION
  Report Type: Spontaneous
  Country: US (occurrence: None)
  Receive Date: 20231129
  Receipt Date: 20231129
  Transmission Date: 20240109
  Serious: Yes (Hospitalization)
  Sender: FDA-Public Use
  Company Number: None

PATIENT
  Age: 56 Year
  Sex: Female

DRUGS (10)
  1. SPRYCEL [Suspect]
     Active Substance: DASATINIB
     Indication: Chronic myeloid leukaemia
     Route: 048
     Dates: start: 20211005
  2. ASPIRIN CHW 81MG [Concomitant]
  3. DICLOFENAC [Concomitant]
     Active Substance: DICLOFENAC
  4. DULOXETINE CAP 30MG [Concomitant]
  5. DULOXETINE CAP 60MG [Concomitant]
  6. ESCITALOPRAM TAB 20MG [Concomitant]
  7. GABAPENTIN [Concomitant]
     Active Substance: GABAPENTIN
  8. MULTIVITAMIN TAB ADULTS [Concomitant]
  9. OMEPRAZOLE [Concomitant]
     Active Substance: OMEPRAZOLE
  10. TYLENOL TAB 500MG [Concomitant]

REACTIONS (9)
  - Therapy interrupted [None]
  - Intentional overdose [None]
  - Amnesia [None]
  - Depression [None]
  - Anxiety [None]
  - Fatigue [None]
  - Memory impairment [None]
  - Insomnia [None]
  - Sleep apnoea syndrome [None]

NARRATIVE: CASE EVENT DATE: 20230806
